FAERS Safety Report 9223857 (Version 1)
Quarter: 2013Q2

REPORT INFORMATION
  Report Type: Spontaneous
  Country: US (occurrence: US)
  Receive Date: 20130411
  Receipt Date: 20130411
  Transmission Date: 20140414
  Serious: No
  Sender: FDA-Public Use
  Company Number: US-009507513-1303USA007955

PATIENT
  Sex: 0
  Weight: 53.61 kg

DRUGS (2)
  1. IMPLANON [Suspect]
     Dosage: 1 DF, UNK
     Route: 059
     Dates: start: 20130312, end: 20130312
  2. IMPLANON [Suspect]
     Dosage: 1 DF, UNK
     Route: 059
     Dates: start: 20130312, end: 20130312

REACTIONS (3)
  - Device difficult to use [Unknown]
  - Needle issue [Unknown]
  - No adverse event [Unknown]
